FAERS Safety Report 4265056-8 (Version None)
Quarter: 2004Q1

REPORT INFORMATION
  Report Type: 
  Country: None (occurrence: None)
  Receive Date: 20040106
  Receipt Date: 20040106
  Transmission Date: 20041129
  Serious: Yes (Life-Threatening, Hospitalization)
  Sender: FDA-Public Use
  Company Number: None

PATIENT
  Age: 34 Year
  Sex: Female
  Weight: 83.0083 kg

DRUGS (2)
  1. WELLBUTRIN SR [Suspect]
     Indication: IMPATIENCE
     Dosage: 1 TABLET TWICE A DAY (A WEEK OR TWO BEFORE PERIOD)
     Dates: start: 20030901, end: 20031201
  2. WELLBUTRIN SR [Suspect]
     Indication: PREMENSTRUAL SYNDROME
     Dosage: 1 TABLET TWICE A DAY (A WEEK OR TWO BEFORE PERIOD)
     Dates: start: 20030901, end: 20031201

REACTIONS (2)
  - HALLUCINATION [None]
  - ROAD TRAFFIC ACCIDENT [None]
